FAERS Safety Report 21577841 (Version 1)
Quarter: 2022Q4

REPORT INFORMATION
  Report Type: Spontaneous
  Country: US (occurrence: US)
  Receive Date: 20221110
  Receipt Date: 20221110
  Transmission Date: 20230113
  Serious: No
  Sender: FDA-Public Use
  Company Number: US-ARBOR PHARMACEUTICALS, LLC-US-2022ARB000204

PATIENT
  Sex: Female

DRUGS (1)
  1. GLIADEL [Suspect]
     Active Substance: CARMUSTINE
     Indication: Product used for unknown indication
     Dosage: UNK

REACTIONS (3)
  - Feeling hot [Unknown]
  - Paraesthesia [Unknown]
  - Accidental exposure to product [Unknown]
